FAERS Safety Report 8847237 (Version 1)
Quarter: 2012Q4

REPORT INFORMATION
  Report Type: 
  Country: ES (occurrence: ES)
  Receive Date: 20121018
  Receipt Date: 20121018
  Transmission Date: 20130627
  Serious: Yes (Hospitalization, Other)
  Sender: FDA-Public Use
  Company Number: PHHY2012ES090523

PATIENT
  Age: 84 Year
  Sex: Male

DRUGS (6)
  1. HIGROTON [Suspect]
     Indication: CARDIAC FAILURE CONGESTIVE
     Dosage: 50 mg, QD
     Route: 048
     Dates: start: 20120120, end: 20120131
  2. FUROSEMIDE [Interacting]
     Indication: CARDIAC FAILURE CONGESTIVE
     Dosage: 40 mg, QD
     Route: 048
     Dates: start: 20120120, end: 20120131
  3. SIMVASTATIN [Concomitant]
     Indication: CARDIOVASCULAR EVENT PROPHYLAXIS
     Dosage: 40 mg, QD
     Route: 048
  4. ADALAT OROS [Concomitant]
     Indication: HYPERTENSION
     Dosage: 30 mg, QD
     Route: 048
     Dates: start: 20120120, end: 20120131
  5. DILUTOL [Concomitant]
     Indication: CARDIAC FAILURE CONGESTIVE
     Dosage: 10 mg, QD
     Route: 048
     Dates: start: 20100922, end: 20120131
  6. PLAVIX [Concomitant]
     Indication: CARDIOVASCULAR EVENT PROPHYLAXIS
     Dosage: 75 mg, QD
     Route: 048

REACTIONS (3)
  - Renal failure [Not Recovered/Not Resolved]
  - Cardiac failure congestive [Not Recovered/Not Resolved]
  - Drug interaction [Unknown]
